FAERS Safety Report 24428021 (Version 1)
Quarter: 2024Q4

REPORT INFORMATION
  Report Type: Spontaneous
  Country: US (occurrence: US)
  Receive Date: 20241011
  Receipt Date: 20241011
  Transmission Date: 20250114
  Serious: No
  Sender: LEO PHARM
  Company Number: US-LEO Pharma-374140

PATIENT
  Age: 57 Year
  Sex: Male

DRUGS (1)
  1. ADBRY [Suspect]
     Active Substance: TRALOKINUMAB-LDRM
     Indication: Dermatitis atopic
     Dosage: TREATMENT IS ONGOING
     Route: 058
     Dates: start: 202408

REACTIONS (5)
  - Dyspnoea [Unknown]
  - Arthralgia [Unknown]
  - Pyrexia [Unknown]
  - Dizziness [Unknown]
  - Myalgia [Unknown]
